FAERS Safety Report 7547291-6 (Version None)
Quarter: 2011Q2

REPORT INFORMATION
  Report Type: 
  Country: None (occurrence: None)
  Receive Date: 20110614
  Receipt Date: 20090127
  Transmission Date: 20111010
  Serious: Yes (Death, Other)
  Sender: FDA-Public Use
  Company Number: US-BAYER-200912085NA

PATIENT
  Sex: Male

DRUGS (1)
  1. TRASYLOL [Suspect]
     Indication: CARDIAC OPERATION
     Dosage: UNK
     Route: 042
     Dates: start: 20051229

REACTIONS (6)
  - UNEVALUABLE EVENT [None]
  - ANXIETY [None]
  - DEATH [None]
  - INJURY [None]
  - EMOTIONAL DISTRESS [None]
  - PAIN [None]
